FAERS Safety Report 8610937-5 (Version None)
Quarter: 2012Q3

REPORT INFORMATION
  Report Type: 
  Country: None (occurrence: None)
  Receive Date: 20120822
  Receipt Date: 20120816
  Transmission Date: 20120928
  Serious: Yes (Hospitalization)
  Sender: FDA-Public Use
  Company Number: PHHY2012GB047362

PATIENT
  Age: 36 Year
  Sex: Female

DRUGS (2)
  1. IMPLANON [Interacting]
     Indication: CONTRACEPTION
  2. CARBAMAZEPINE [Suspect]
     Indication: EPILEPSY

REACTIONS (7)
  - DRUG INTERACTION [None]
  - DRUG INEFFECTIVE [None]
  - THROMBOSIS [None]
  - ABDOMINAL PAIN LOWER [None]
  - RUPTURED ECTOPIC PREGNANCY [None]
  - VAGINAL HAEMORRHAGE [None]
  - MATERNAL EXPOSURE DURING PREGNANCY [None]
